FAERS Safety Report 13427553 (Version 2)
Quarter: 2017Q3

REPORT INFORMATION
  Report Type: Report from Study
  Country: US (occurrence: US)
  Receive Date: 20170411
  Receipt Date: 20170816
  Transmission Date: 20171127
  Serious: Yes (Life-Threatening, Hospitalization, Other)
  Sender: FDA-Public Use
  Company Number: US-GILEAD-2017-0267169

PATIENT
  Age: 62 Year
  Sex: Female

DRUGS (29)
  1. METRONIDAZOL                       /00012501/ [Concomitant]
     Active Substance: METRONIDAZOLE
  2. PANTOPRAZOLE [Concomitant]
     Active Substance: PANTOPRAZOLE
  3. METOCLOPRAM [Concomitant]
     Active Substance: METOCLOPRAMIDE
  4. METOPROLOL. [Concomitant]
     Active Substance: METOPROLOL
  5. OXYCODONE [Concomitant]
     Active Substance: OXYCODONE
  6. PROAIR HFA [Concomitant]
     Active Substance: ALBUTEROL SULFATE
  7. HYDROXYZINE HYDROCHLORIDE. [Concomitant]
     Active Substance: HYDROXYZINE HYDROCHLORIDE
  8. ESOMEPRA [Concomitant]
     Active Substance: ESOMEPRAZOLE
  9. MEGESTROL [Concomitant]
     Active Substance: MEGESTROL
  10. METHOCARBAMOL. [Concomitant]
     Active Substance: METHOCARBAMOL
  11. UPTRAVI [Concomitant]
     Active Substance: SELEXIPAG
  12. TRIAMCINOLON                       /00031901/ [Concomitant]
  13. VANCOMYCIN [Concomitant]
     Active Substance: VANCOMYCIN
  14. FERROUS SULFATE. [Concomitant]
     Active Substance: FERROUS SULFATE
  15. ALPRAZOLAM. [Concomitant]
     Active Substance: ALPRAZOLAM
  16. RENVELA [Concomitant]
     Active Substance: SEVELAMER CARBONATE
  17. AMBRISENTAN [Suspect]
     Active Substance: AMBRISENTAN
     Indication: PULMONARY ARTERIAL HYPERTENSION
     Dosage: 5 MG, QD
     Route: 065
     Dates: start: 20160511
  18. ASPIRIN                            /00002701/ [Concomitant]
     Active Substance: ASPIRIN
  19. DICYCLOMINE                        /00068601/ [Concomitant]
     Active Substance: DICYCLOMINE HYDROCHLORIDE
  20. OXYCODONE W/APAP [Concomitant]
     Active Substance: ACETAMINOPHEN\OXYCODONE HYDROCHLORIDE
  21. RANITIDINE. [Concomitant]
     Active Substance: RANITIDINE
  22. FOLIC ACID. [Concomitant]
     Active Substance: FOLIC ACID
  23. B COMPLETE                         /06817001/ [Concomitant]
  24. ADCIRCA [Concomitant]
     Active Substance: TADALAFIL
  25. CHOLESTYRAMIN [Concomitant]
  26. HYDROCODONE BITARTRATE AND ACETAMINOPHEN [Concomitant]
     Active Substance: ACETAMINOPHEN\HYDROCODONE BITARTRATE
  27. ZOLPIDEM [Concomitant]
     Active Substance: ZOLPIDEM\ZOLPIDEM TARTRATE
  28. SUCRALFATE. [Concomitant]
     Active Substance: SUCRALFATE
  29. ODANSE                             /00955301/ [Concomitant]

REACTIONS (2)
  - Sepsis [Unknown]
  - Appendicitis [Recovered/Resolved]
